FAERS Safety Report 25490745 (Version 1)
Quarter: 2025Q2

REPORT INFORMATION
  Report Type: Spontaneous
  Country: US (occurrence: US)
  Receive Date: 20250627
  Receipt Date: 20250627
  Transmission Date: 20250716
  Serious: No
  Sender: SANOFI AVENTIS
  Company Number: US-SA-2025SA181555

PATIENT
  Age: 76 Year
  Sex: Female

DRUGS (15)
  1. DUPIXENT [Suspect]
     Active Substance: DUPILUMAB
     Indication: Chronic obstructive pulmonary disease
     Route: 058
     Dates: start: 20241205
  2. AMLODIPINE [Suspect]
     Active Substance: AMLODIPINE BESYLATE
  3. POTASSIUM [Concomitant]
     Active Substance: POTASSIUM
  4. SPIRIVA [Concomitant]
     Active Substance: TIOTROPIUM BROMIDE MONOHYDRATE
  5. IPRATROPIUM [Concomitant]
     Active Substance: IPRATROPIUM
  6. ZITHROMAX [Concomitant]
     Active Substance: AZITHROMYCIN DIHYDRATE
  7. HYZAAR [Concomitant]
     Active Substance: HYDROCHLOROTHIAZIDE\LOSARTAN POTASSIUM
  8. EFFEXOR [Concomitant]
     Active Substance: VENLAFAXINE HYDROCHLORIDE
  9. SINGULAIR [Concomitant]
     Active Substance: MONTELUKAST SODIUM
  10. ROFLUMILAST [Concomitant]
     Active Substance: ROFLUMILAST
  11. MINERALS\VITAMINS [Concomitant]
     Active Substance: MINERALS\VITAMINS
  12. ALPHAGAN P [Concomitant]
     Active Substance: BRIMONIDINE TARTRATE
  13. PREGABALIN [Concomitant]
     Active Substance: PREGABALIN
  14. FLUTICASONE [Concomitant]
     Active Substance: FLUTICASONE
  15. PREDNISONE [Concomitant]
     Active Substance: PREDNISONE

REACTIONS (2)
  - Peripheral swelling [Unknown]
  - Joint swelling [Unknown]

NARRATIVE: CASE EVENT DATE: 20250624
